FAERS Safety Report 21872116 (Version 1)
Quarter: 2023Q1

REPORT INFORMATION
  Report Type: Spontaneous
  Country: DE (occurrence: DE)
  Receive Date: 20230117
  Receipt Date: 20230117
  Transmission Date: 20230417
  Serious: Yes (Other)
  Sender: FDA-Public Use
  Company Number: DE-BRISTOL-MYERS SQUIBB COMPANY-2023-005285

PATIENT
  Age: 53 Year
  Sex: Male
  Weight: 80 kg

DRUGS (2)
  1. OZANIMOD [Suspect]
     Active Substance: OZANIMOD
     Indication: Relapsing-remitting multiple sclerosis
     Dates: start: 20210116, end: 20210827
  2. OZANIMOD [Suspect]
     Active Substance: OZANIMOD
     Dates: start: 202110

REACTIONS (2)
  - Generalised tonic-clonic seizure [Unknown]
  - Multiple sclerosis [Unknown]
